FAERS Safety Report 15704681 (Version 5)
Quarter: 2020Q1

REPORT INFORMATION
  Report Type: Spontaneous
  Country: JP (occurrence: JP)
  Receive Date: 20181210
  Receipt Date: 20200219
  Transmission Date: 20200409
  Serious: Yes (Hospitalization, Other)
  Sender: FDA-Public Use
  Company Number: JP-GLAXOSMITHKLINE-JP2018JPN218674

PATIENT
  Age: 33 Year
  Sex: Female
  Weight: 47 kg

DRUGS (5)
  1. BETAMETHASONE. [Concomitant]
     Active Substance: BETAMETHASONE
     Dosage: 4 MG, BID
     Dates: end: 20171218
  2. E KEPPRA [Concomitant]
     Active Substance: LEVETIRACETAM
     Indication: EPILEPSY
     Dosage: 500 MG, BID
     Route: 048
  3. BETAMETHASONE. [Concomitant]
     Active Substance: BETAMETHASONE
     Indication: PROPHYLAXIS
     Dosage: 12 MG, QD
     Dates: start: 20171114, end: 20171115
  4. LOXONIN [Concomitant]
     Active Substance: LOXOPROFEN SODIUM
     Indication: HEADACHE
     Dosage: 60 MG, TID
     Route: 048
     Dates: end: 20171113
  5. LAMICTAL [Suspect]
     Active Substance: LAMOTRIGINE
     Indication: EPILEPSY
     Dosage: 100 MG, BID
     Route: 048

REACTIONS (13)
  - Cerebral ventricular rupture [Recovered/Resolved]
  - Cerebral haemorrhage [Recovered/Resolved with Sequelae]
  - Anaemia [Recovering/Resolving]
  - Vomiting [Recovering/Resolving]
  - Sinus tachycardia [Recovering/Resolving]
  - Premature delivery [Unknown]
  - Hemiplegia [Recovering/Resolving]
  - Condition aggravated [Recovering/Resolving]
  - Maternal exposure during pregnancy [Unknown]
  - Gait disturbance [Recovering/Resolving]
  - Hemianaesthesia [Recovering/Resolving]
  - Cerebral arteriovenous malformation haemorrhagic [Recovering/Resolving]
  - Headache [Recovering/Resolving]

NARRATIVE: CASE EVENT DATE: 201705
